FAERS Safety Report 5281203-3 (Version None)
Quarter: 2007Q1

REPORT INFORMATION
  Report Type: 
  Country: None (occurrence: None)
  Receive Date: 20070323
  Receipt Date: 20070314
  Transmission Date: 20070707
  Serious: Yes (Other)
  Sender: FDA-Public Use
  Company Number: 2007RR-06350

PATIENT
  Age: 63 Year
  Sex: Female

DRUGS (4)
  1. RANITIDINE [Suspect]
     Dosage: INTRAVENOUS
     Route: 042
  2. DEXCHLORPHENIRAMINE MALEATE [Suspect]
     Dosage: INTRAVENOUS
     Route: 042
  3. METHYLPREDNISOLONE INJECTION [Concomitant]
  4. GRANISETRON [Concomitant]

REACTIONS (6)
  - DISCOMFORT [None]
  - DRUG HYPERSENSITIVITY [None]
  - LOSS OF CONSCIOUSNESS [None]
  - PULSE ABSENT [None]
  - RESPIRATORY ARREST [None]
  - TYPE III IMMUNE COMPLEX MEDIATED REACTION [None]
